FAERS Safety Report 19927351 (Version 1)
Quarter: 2021Q4

REPORT INFORMATION
  Report Type: Spontaneous
  Country: DE (occurrence: DE)
  Receive Date: 20211007
  Receipt Date: 20211007
  Transmission Date: 20220303
  Serious: Yes (Other)
  Sender: FDA-Public Use
  Company Number: DE-SUN PHARMACEUTICAL INDUSTRIES LTD-2021RR-313536

PATIENT
  Age: 29 Year
  Sex: Female

DRUGS (16)
  1. NOREPINEPHRINE [Suspect]
     Active Substance: NOREPINEPHRINE
     Indication: Product used for unknown indication
     Dosage: UNK
     Route: 065
  2. MIDAZOLAM [Suspect]
     Active Substance: MIDAZOLAM
     Indication: Craniocerebral injury
     Dosage: UNK
     Route: 065
  3. METOCLOPRAMIDE [Suspect]
     Active Substance: METOCLOPRAMIDE
     Indication: Product used for unknown indication
     Dosage: UNK
     Route: 065
  4. LEVOTHYROXINE [Suspect]
     Active Substance: LEVOTHYROXINE
     Indication: Endocrine disorder
     Dosage: 25 MICROGRAM, DAILY
     Route: 065
  5. SODIUM PICOSULFATE [Suspect]
     Active Substance: SODIUM PICOSULFATE
     Indication: Defaecation urgency
     Dosage: UNK
     Route: 065
  6. DESMOPRESSIN [Suspect]
     Active Substance: DESMOPRESSIN
     Indication: Diabetes insipidus
     Dosage: UNK
     Route: 065
  7. DESMOPRESSIN [Suspect]
     Active Substance: DESMOPRESSIN
     Dosage: UNK
     Route: 042
  8. ENOXAPARIN SODIUM [Suspect]
     Active Substance: ENOXAPARIN SODIUM
     Indication: Prophylaxis
     Dosage: UNK
     Route: 058
  9. PROPOFOL [Suspect]
     Active Substance: PROPOFOL
     Indication: Craniocerebral injury
     Dosage: UNK
     Route: 065
  10. AMPICILLIN SODIUM\SULBACTAM SODIUM [Suspect]
     Active Substance: AMPICILLIN SODIUM\SULBACTAM SODIUM
     Indication: Pneumonia aspiration
     Dosage: UNK
     Route: 065
  11. ERYTHROMYCIN [Suspect]
     Active Substance: ERYTHROMYCIN
     Indication: Product used for unknown indication
     Dosage: UNK
     Route: 065
  12. HYDROCORTISONE [Suspect]
     Active Substance: HYDROCORTISONE
     Indication: Endocrine disorder
     Dosage: 2 MILLIGRAM/ HOUR
     Route: 042
  13. MAGNESIUM [Suspect]
     Active Substance: MAGNESIUM
     Indication: Product used for unknown indication
     Dosage: EFFERVESCENT GRANULES
     Route: 065
  14. SUFENTANIL [Suspect]
     Active Substance: SUFENTANIL
     Indication: Craniocerebral injury
     Dosage: UNK
     Route: 065
  15. BISACODYL [Suspect]
     Active Substance: BISACODYL
     Indication: Product used for unknown indication
     Dosage: UNK
     Route: 065
  16. DEXTROSE [Suspect]
     Active Substance: DEXTROSE
     Indication: Diabetes insipidus
     Dosage: UNK
     Route: 065

REACTIONS (3)
  - Exposure during pregnancy [Unknown]
  - Drug ineffective [Unknown]
  - Premature baby [Unknown]
